FAERS Safety Report 6204759-2 (Version None)
Quarter: 2009Q2

REPORT INFORMATION
  Report Type: 
  Country: None (occurrence: None)
  Receive Date: 20090527
  Receipt Date: 20090519
  Transmission Date: 20091009
  Serious: Yes (Hospitalization)
  Sender: FDA-Public Use
  Company Number: DE-PFIZER INC-2008101590

PATIENT
  Age: 67 Year

DRUGS (4)
  1. AROMASIN [Suspect]
     Indication: BREAST CANCER METASTATIC
     Dosage: 25 MG, 1X/DAY
     Route: 048
     Dates: start: 20080507, end: 20080101
  2. SIMVASTATIN [Concomitant]
     Dosage: 20 MG, UNK
  3. VALSARTAN [Concomitant]
     Dosage: 80 MG, UNK
  4. ACETYLSALICYLIC ACID [Concomitant]
     Dosage: 100 MG, UNK

REACTIONS (1)
  - DERMATITIS ALLERGIC [None]
